FAERS Safety Report 9679029 (Version 4)
Quarter: 2013Q4

REPORT INFORMATION
  Report Type: Spontaneous
  Country: IT (occurrence: IT)
  Receive Date: 20131108
  Receipt Date: 20131223
  Transmission Date: 20140711
  Serious: Yes (Hospitalization)
  Sender: FDA-Public Use
  Company Number: IT-PFIZER INC-2013317395

PATIENT
  Age: 55 Year
  Sex: Female

DRUGS (4)
  1. SERTRALINE HCL [Suspect]
     Indication: DEPRESSION
     Dosage: 100 MG, DAILY
     Route: 048
  2. SERTRALINE HCL [Suspect]
     Dosage: 500 MG, SINGLE
     Route: 048
     Dates: start: 20130527
  3. BROMAZEPAM [Suspect]
     Indication: DEPRESSION
     Dosage: UNK, AS NEEDED
     Route: 048
  4. BROMAZEPAM [Suspect]
     Dosage: 20 ML, SINGLE
     Route: 048
     Dates: start: 20130527

REACTIONS (3)
  - Overdose [Recovered/Resolved]
  - Sopor [Recovered/Resolved]
  - Self injurious behaviour [Recovered/Resolved]
